FAERS Safety Report 14826205 (Version 1)
Quarter: 2018Q2

REPORT INFORMATION
  Report Type: Spontaneous
  Country: DK (occurrence: DK)
  Receive Date: 20180430
  Receipt Date: 20180430
  Transmission Date: 20180711
  Serious: Yes (Disabling)
  Sender: FDA-Public Use
  Company Number: DK-TEVA-2018-DK-887177

PATIENT
  Age: 46 Year
  Sex: Male

DRUGS (2)
  1. LAMOTRIGINE TEVA [Suspect]
     Active Substance: LAMOTRIGINE
     Indication: EPILEPSY
     Dosage: STYRKE: 200MG
     Route: 048
     Dates: start: 2006
  2. MAREVAN [Concomitant]
     Active Substance: WARFARIN SODIUM
     Indication: THROMBOSIS PROPHYLAXIS
     Dosage: STRENGTH: 2.5MG?DOSAGE: DOSAGE FOLLOWING WRITTEN INSTRUCTIONS
     Route: 048
     Dates: start: 2006

REACTIONS (3)
  - Osteoporosis [Unknown]
  - Back pain [Unknown]
  - Spinal compression fracture [Unknown]

NARRATIVE: CASE EVENT DATE: 2014
